FAERS Safety Report 5274043-2 (Version None)
Quarter: 2007Q1

REPORT INFORMATION
  Report Type: 
  Country: None (occurrence: None)
  Receive Date: 20070323
  Receipt Date: 20070308
  Transmission Date: 20070707
  Serious: Yes (Hospitalization)
  Sender: FDA-Public Use
  Company Number: GBWYE940308MAR07

PATIENT
  Sex: Male

DRUGS (4)
  1. ENBREL [Suspect]
     Indication: POLYARTHRITIS
     Route: 058
     Dates: start: 20000910
  2. INDOMETHACIN [Concomitant]
     Dosage: UNKNOWN
     Dates: start: 19970801
  3. METHOTREXATE [Concomitant]
     Dates: start: 19950301
  4. PREDNISOLONE [Concomitant]
     Route: 048
     Dates: start: 19980701

REACTIONS (2)
  - ARTHRITIS [None]
  - VIRAL PHARYNGITIS [None]
